FAERS Safety Report 9331211 (Version 1)
Quarter: 2013Q2

REPORT INFORMATION
  Report Type: Spontaneous
  Country: US (occurrence: US)
  Receive Date: 20130605
  Receipt Date: 20130605
  Transmission Date: 20140414
  Serious: Yes (Death, Other)
  Sender: FDA-Public Use
  Company Number: US-SANOFI-AVENTIS-2013SA055801

PATIENT
  Sex: 0

DRUGS (1)
  1. LANTUS [Suspect]
     Indication: DIABETES MELLITUS

REACTIONS (2)
  - Cardiac disorder [Fatal]
  - Cerebrovascular accident [Unknown]
